FAERS Safety Report 23509706 (Version 2)
Quarter: 2024Q1

REPORT INFORMATION
  Report Type: Spontaneous
  Country: MX (occurrence: MX)
  Receive Date: 20240210
  Receipt Date: 20240325
  Transmission Date: 20240410
  Serious: Yes (Death, Hospitalization, Other)
  Sender: FDA-Public Use
  Company Number: MX-TAKEDA-2024TUS012765

PATIENT
  Age: 76 Year
  Sex: Female
  Weight: 53 kg

DRUGS (5)
  1. NINLARO [Suspect]
     Active Substance: IXAZOMIB CITRATE
     Indication: Plasma cell myeloma
     Dosage: 4 MILLIGRAM
     Route: 048
     Dates: start: 20230919
  2. REVLIMID [Concomitant]
     Active Substance: LENALIDOMIDE
     Dosage: 25 MILLIGRAM
     Route: 065
  3. Riopan [Concomitant]
     Indication: Gastrointestinal disorder
     Dosage: UNK
     Route: 065
  4. METFORMIN HYDROCHLORIDE [Concomitant]
     Active Substance: METFORMIN HYDROCHLORIDE
     Dosage: 850 MILLIGRAM, QD
     Route: 065
  5. ASPIRIN [Concomitant]
     Active Substance: ASPIRIN
     Dosage: 100 MILLIGRAM, QD
     Route: 065

REACTIONS (8)
  - Acute respiratory failure [Fatal]
  - Diarrhoea [Unknown]
  - Pyrexia [Unknown]
  - Chills [Unknown]
  - Shock [Unknown]
  - Pancreatitis [Unknown]
  - Renal failure [Unknown]
  - Metabolic acidosis [Unknown]

NARRATIVE: CASE EVENT DATE: 20231218
